FAERS Safety Report 7779102-8 (Version None)
Quarter: 2011Q3

REPORT INFORMATION
  Report Type: 
  Country: None (occurrence: None)
  Receive Date: 20110926
  Receipt Date: 20110915
  Transmission Date: 20111222
  Serious: Yes (Hospitalization, Disabling, Other)
  Sender: FDA-Public Use
  Company Number: CA-ASTRAZENECA-2011SE52042

PATIENT
  Age: 57 Year
  Sex: Female
  Weight: 50.8 kg

DRUGS (11)
  1. SULFA [Suspect]
  2. OXYCODONE [Concomitant]
     Indication: PAIN
     Route: 048
     Dates: start: 19990101
  3. CRESTOR [Suspect]
     Indication: BLOOD CHOLESTEROL ABNORMAL
     Route: 048
     Dates: start: 19970101
  4. DOCUSATE [Concomitant]
     Indication: FAECES HARD
     Route: 048
  5. PEPPERMINT OIL [Concomitant]
  6. SEROQUEL [Suspect]
     Route: 048
  7. LEVOTHYROXINE SODIUM [Concomitant]
     Indication: THYROID DISORDER
     Route: 048
  8. PANTOPRAZOLE [Concomitant]
     Indication: GASTRIC DISORDER
     Route: 048
  9. RAMIPRIL [Concomitant]
     Indication: BLOOD PRESSURE ABNORMAL
     Route: 048
  10. RISEDRONATE SODIUM [Concomitant]
     Indication: ARTHRITIS
     Route: 048
  11. OXYCODONE AND ACETAMINOPHEN [Concomitant]
     Indication: PAIN
     Route: 048

REACTIONS (18)
  - NEPHROLITHIASIS [None]
  - FALL [None]
  - ARTHRITIS [None]
  - LIMB INJURY [None]
  - OSTEOPENIA [None]
  - FIBROMYALGIA [None]
  - IRRITABLE BOWEL SYNDROME [None]
  - MIGRAINE WITH AURA [None]
  - INSOMNIA [None]
  - DEPRESSION [None]
  - COMPLEX REGIONAL PAIN SYNDROME [None]
  - MYALGIA [None]
  - HYPOAESTHESIA [None]
  - MUSCULAR WEAKNESS [None]
  - MIGRAINE [None]
  - DIPLOPIA [None]
  - HAEMATOCHEZIA [None]
  - VASCULAR ENCEPHALOPATHY [None]
